FAERS Safety Report 4277783-7 (Version None)
Quarter: 2004Q1

REPORT INFORMATION
  Report Type: 
  Country: None (occurrence: None)
  Receive Date: 20040121
  Receipt Date: 20040115
  Transmission Date: 20041129
  Serious: Yes (Death)
  Sender: FDA-Public Use
  Company Number: 200310354BNE

PATIENT
  Sex: Female

DRUGS (9)
  1. ASPIRIN [Suspect]
     Indication: HYPERTENSION
     Dosage: 75 MG, TOTAL DAILY
  2. ROFECOXIB [Suspect]
     Dosage: 25 MG, TOTAL DAILY, ORAL
     Route: 048
  3. FOSAMAX [Concomitant]
  4. CO-CODAMOL [Concomitant]
  5. BENDROFLUMETHIAZIDE [Concomitant]
  6. MICORANDIL [Concomitant]
  7. DOXAZOSIN MESYLATE [Concomitant]
  8. FLUOXETINE [Concomitant]
  9. PROCHLORPERAZINE MALEATE [Concomitant]

REACTIONS (2)
  - GASTROINTESTINAL HAEMORRHAGE [None]
  - HAEMATEMESIS [None]
